FAERS Safety Report 4767929-6 (Version None)
Quarter: 2005Q3

REPORT INFORMATION
  Report Type: 
  Country: None (occurrence: None)
  Receive Date: 20050912
  Receipt Date: 20050825
  Transmission Date: 20060218
  Serious: Yes (Hospitalization)
  Sender: FDA-Public Use
  Company Number: 190765

PATIENT
  Age: 54 Year
  Sex: Female
  Weight: 97.0698 kg

DRUGS (4)
  1. AVONEX [Suspect]
     Indication: MULTIPLE SCLEROSIS
     Dosage: 30 UG;QW;IM; SEE IMAGE
     Route: 030
     Dates: start: 20000101, end: 20030101
  2. AVONEX [Suspect]
     Indication: MULTIPLE SCLEROSIS
     Dosage: 30 UG;QW;IM; SEE IMAGE
     Route: 030
     Dates: start: 20030101, end: 20031001
  3. AVONEX [Suspect]
     Indication: MULTIPLE SCLEROSIS
     Dosage: 30 UG;QW;IM; SEE IMAGE
     Route: 030
     Dates: start: 20031116, end: 20031116
  4. NEURONTIN [Concomitant]

REACTIONS (6)
  - CERVICAL VERTEBRAL FRACTURE [None]
  - DEPRESSION [None]
  - FALL [None]
  - HEADACHE [None]
  - INFLUENZA LIKE ILLNESS [None]
  - INTERVERTEBRAL DISC DISPLACEMENT [None]
